FAERS Safety Report 4683216-9 (Version None)
Quarter: 2005Q2

REPORT INFORMATION
  Report Type: 
  Country: None (occurrence: None)
  Receive Date: 20050602
  Receipt Date: 20050131
  Transmission Date: 20051028
  Serious: No
  Sender: FDA-Public Use
  Company Number: USA050289581

PATIENT
  Sex: Male

DRUGS (9)
  1. CYMBALTA [Suspect]
     Indication: DEPRESSION
     Dosage: 30 MG DAY
     Dates: start: 20041101
  2. EFFEXOR [Concomitant]
  3. REMERON (MIRTAZAPINE ORIFARM) [Concomitant]
  4. ATIVAN [Concomitant]
  5. AMBIEN [Concomitant]
  6. RISPERDAL [Concomitant]
  7. SYNTHROID [Concomitant]
  8. ATROMID-S (CLOFIBRATE) [Concomitant]
  9. PROVIGIL [Concomitant]

REACTIONS (1)
  - FEELING COLD [None]
